FAERS Safety Report 14515428 (Version 1)
Quarter: 2018Q1

REPORT INFORMATION
  Report Type: Report from Study
  Country: US (occurrence: US)
  Receive Date: 20180210
  Receipt Date: 20180210
  Transmission Date: 20180509
  Serious: No
  Sender: FDA-Public Use
  Company Number: US-PUMA BIOTECHNOLOGY, LTD.-2017US014423

PATIENT

DRUGS (2)
  1. NERLYNX [Suspect]
     Active Substance: NERATINIB
     Dosage: 40 MG, DAILY
     Route: 048
     Dates: start: 20171107, end: 20171111
  2. NERLYNX [Suspect]
     Active Substance: NERATINIB
     Indication: BREAST CANCER
     Dosage: 240 MG, DAILY
     Route: 048
     Dates: start: 20170920, end: 20171016

REACTIONS (9)
  - Oral pain [Recovering/Resolving]
  - Nausea [Recovered/Resolved]
  - Dermatitis acneiform [Recovering/Resolving]
  - Diarrhoea [Recovering/Resolving]
  - Anxiety [Unknown]
  - Fatigue [Recovered/Resolved]
  - Dry mouth [Recovering/Resolving]
  - Asthenia [Recovered/Resolved]
  - Dysgeusia [Recovering/Resolving]

NARRATIVE: CASE EVENT DATE: 201710
